FAERS Safety Report 21036966 (Version 2)
Quarter: 2022Q3

REPORT INFORMATION
  Report Type: Spontaneous
  Country: US (occurrence: None)
  Receive Date: 20220702
  Receipt Date: 20220809
  Transmission Date: 20221027
  Serious: No
  Sender: FDA-Public Use
  Company Number: 2022A235878

PATIENT
  Age: 848 Month
  Sex: Female
  Weight: 64.9 kg

DRUGS (4)
  1. BYDUREON BCISE [Suspect]
     Active Substance: EXENATIDE
     Indication: Diabetes mellitus
     Route: 058
     Dates: start: 20220611
  2. BYDUREON BCISE [Suspect]
     Active Substance: EXENATIDE
     Indication: Insulin resistance
     Route: 058
     Dates: start: 20220611
  3. BYDUREON BCISE [Suspect]
     Active Substance: EXENATIDE
     Indication: Diabetes mellitus
     Route: 058
     Dates: start: 20220606
  4. BYDUREON BCISE [Suspect]
     Active Substance: EXENATIDE
     Indication: Insulin resistance
     Route: 058
     Dates: start: 20220606

REACTIONS (3)
  - Blood glucose decreased [Unknown]
  - Wrong technique in device usage process [Unknown]
  - Device malfunction [Unknown]

NARRATIVE: CASE EVENT DATE: 20220601
